FAERS Safety Report 6049711-5 (Version None)
Quarter: 2009Q1

REPORT INFORMATION
  Report Type: 
  Country: None (occurrence: None)
  Receive Date: 20090121
  Receipt Date: 20080129
  Transmission Date: 20090719
  Serious: Yes (Other)
  Sender: FDA-Public Use
  Company Number: US-WYE-H00780107

PATIENT
  Age: 57 Year
  Sex: Female
  Weight: 77.18 kg

DRUGS (7)
  1. PREMPRO [Suspect]
     Indication: HORMONE REPLACEMENT THERAPY
     Dosage: 1 TABLET 1X PER 1 DAY, ORAL
     Route: 048
     Dates: start: 19800101, end: 20070801
  2. PREMARIN [Suspect]
     Dosage: 0.3 MG 1X PER 1 DAY, ORAL
     Route: 048
     Dates: start: 20050505
  3. LORTAB [Concomitant]
  4. HYZAAR [Concomitant]
  5. NORVASC [Concomitant]
  6. CATAPRES [Concomitant]
  7. POTASSIUM (POTASSIUM) [Concomitant]

REACTIONS (2)
  - CONTUSION [None]
  - MUSCLE SPASMS [None]
